FAERS Safety Report 7357664-2 (Version None)
Quarter: 2011Q1

REPORT INFORMATION
  Report Type: 
  Country: None (occurrence: None)
  Receive Date: 20110317
  Receipt Date: 20110305
  Transmission Date: 20110831
  Serious: Yes (Hospitalization, Other)
  Sender: FDA-Public Use
  Company Number: KR-PAR PHARMACEUTICAL, INC-2011SCPR002753

PATIENT
  Age: 60 Year
  Sex: Female

DRUGS (3)
  1. ALPRAZOLAM [Suspect]
     Indication: SUICIDE ATTEMPT
     Dosage: 20.25 MG, UNKNOWN
     Route: 048
  2. BUSPIRONE [Interacting]
     Indication: SUICIDE ATTEMPT
     Dosage: 405 MG, UNKNOWN
     Route: 048
  3. MIRTAZAPINE [Interacting]
     Indication: SUICIDE ATTEMPT
     Dosage: 405 MG, UNKNOWN
     Route: 048

REACTIONS (8)
  - TOXICITY TO VARIOUS AGENTS [None]
  - MULTIPLE DRUG OVERDOSE INTENTIONAL [None]
  - SUICIDE ATTEMPT [None]
  - ATELECTASIS [None]
  - SEDATION [None]
  - ELECTROCARDIOGRAM QT PROLONGED [None]
  - DRUG INTERACTION [None]
  - HYPOXIA [None]
